FAERS Safety Report 12670605 (Version 1)
Quarter: 2016Q3

REPORT INFORMATION
  Report Type: Spontaneous
  Country: US (occurrence: US)
  Receive Date: 20160822
  Receipt Date: 20160822
  Transmission Date: 20161109
  Serious: No
  Sender: FDA-Public Use
  Company Number: US-TEVA-669809USA

PATIENT
  Age: 75 Year
  Sex: Female
  Weight: 61.74 kg

DRUGS (1)
  1. LEVOCETIRIZINE DIHYDROCHLORIDE. [Suspect]
     Active Substance: LEVOCETIRIZINE DIHYDROCHLORIDE
     Indication: HYPERSENSITIVITY
     Dates: start: 201601

REACTIONS (6)
  - Abdominal pain upper [Unknown]
  - Gastrointestinal disorder [Unknown]
  - Flatulence [Unknown]
  - Product substitution issue [Unknown]
  - Adverse drug reaction [Unknown]
  - Abdominal distension [Unknown]

NARRATIVE: CASE EVENT DATE: 201601
